FAERS Safety Report 23097646 (Version 1)
Quarter: 2023Q4

REPORT INFORMATION
  Report Type: Other
  Country: CN (occurrence: CN)
  Receive Date: 20231023
  Receipt Date: 20231023
  Transmission Date: 20240110
  Serious: Yes (Other)
  Sender: FDA-Public Use
  Company Number: CN-GE HEALTHCARE-2023CSU009255

PATIENT
  Age: 66 Year
  Sex: Male
  Weight: 72 kg

DRUGS (2)
  1. VISIPAQUE [Suspect]
     Active Substance: IODIXANOL
     Indication: Diagnostic procedure
     Dosage: 300 ML, SINGLE
     Route: 013
     Dates: start: 20230926, end: 20230926
  2. VISIPAQUE [Suspect]
     Active Substance: IODIXANOL
     Indication: Product used for unknown indication

REACTIONS (1)
  - Amylase increased [Recovered/Resolved]

NARRATIVE: CASE EVENT DATE: 20230927
